FAERS Safety Report 21188164 (Version 1)
Quarter: 2022Q3

REPORT INFORMATION
  Report Type: Spontaneous
  Country: FR (occurrence: FR)
  Receive Date: 20220809
  Receipt Date: 20220809
  Transmission Date: 20221027
  Serious: Yes (Life-Threatening, Other)
  Sender: FDA-Public Use
  Company Number: FR-AFSSAPS-MP20222242

PATIENT
  Age: 50 Year
  Sex: Female

DRUGS (1)
  1. AMOXICILLIN [Suspect]
     Active Substance: AMOXICILLIN
     Indication: Product administration error
     Dosage: A SEULEMENT L?CH? LA CUILL?RE QUI AVAIT SERVI ? ADMINISTR? LE M?DICAMENT EN QUESTION ? UN TIERS
     Route: 048
     Dates: start: 202010, end: 202010

REACTIONS (1)
  - Anaphylactic shock [Recovered/Resolved]

NARRATIVE: CASE EVENT DATE: 20201001
